FAERS Safety Report 21346870 (Version 1)
Quarter: 2022Q3

REPORT INFORMATION
  Report Type: Spontaneous
  Country: US (occurrence: US)
  Receive Date: 20220918
  Receipt Date: 20220918
  Transmission Date: 20221026
  Serious: Yes (Other)
  Sender: FDA-Public Use
  Company Number: US-NOVARTISPH-NVSC2022US206363

PATIENT
  Sex: Female

DRUGS (3)
  1. ISOSORBIDE DINITRATE [Suspect]
     Active Substance: ISOSORBIDE DINITRATE
     Indication: Arteriospasm coronary
     Dosage: UNK, TID (FOR 14 YEARS)
     Route: 065
     Dates: start: 200801
  2. ISOSORBIDE DINITRATE [Suspect]
     Active Substance: ISOSORBIDE DINITRATE
     Dosage: UNK
     Route: 065
     Dates: start: 202204, end: 202207
  3. ISOSORBIDE DINITRATE [Suspect]
     Active Substance: ISOSORBIDE DINITRATE
     Dosage: UNK
     Route: 065
     Dates: start: 202208

REACTIONS (4)
  - Foreign body in throat [Unknown]
  - Muscle twitching [Unknown]
  - Pharyngeal paraesthesia [Unknown]
  - Throat irritation [Unknown]
